FAERS Safety Report 12425685 (Version 1)
Quarter: 2016Q2

REPORT INFORMATION
  Report Type: Spontaneous
  Country: US (occurrence: US)
  Receive Date: 20160601
  Receipt Date: 20160601
  Transmission Date: 20160815
  Serious: No
  Sender: FDA-Public Use
  Company Number: US-SHIRE-US201606294

PATIENT
  Age: 32 Year
  Sex: Male
  Weight: 92.97 kg

DRUGS (1)
  1. DEXTROAMPHET SACCHARAT, AMPHET ASPARTATE, DEXTROAMPHET SULFATE AND AMPHET SULFAT [Suspect]
     Active Substance: AMPHETAMINE ASPARTATE\AMPHETAMINE SULFATE\DEXTROAMPHETAMINE SACCHARATE\DEXTROAMPHETAMINE SULFATE
     Indication: ATTENTION DEFICIT/HYPERACTIVITY DISORDER
     Dosage: 15 MG, 1X/DAY:QD
     Route: 048

REACTIONS (5)
  - Drug ineffective [Unknown]
  - Amphetamines negative [Unknown]
  - Drug effect variable [Unknown]
  - Asthenia [Unknown]
  - Increased appetite [Unknown]

NARRATIVE: CASE EVENT DATE: 201605
